FAERS Safety Report 23820479 (Version 5)
Quarter: 2024Q3

REPORT INFORMATION
  Report Type: Spontaneous
  Country: DE (occurrence: DE)
  Receive Date: 20240506
  Receipt Date: 20240813
  Transmission Date: 20241017
  Serious: Yes (Other)
  Sender: NOVARTIS
  Company Number: DE-002147023-NVSC2024DE094981

PATIENT
  Age: 51 Year
  Sex: Female

DRUGS (1)
  1. GILENYA [Suspect]
     Active Substance: FINGOLIMOD HYDROCHLORIDE
     Indication: Relapsing-remitting multiple sclerosis
     Dosage: 0.5 MG (STOP DATE:2024)
     Route: 065
     Dates: start: 2018, end: 2024

REACTIONS (5)
  - Invasive ductal breast carcinoma [Unknown]
  - Breast mass [Unknown]
  - Multiple sclerosis relapse [Recovered/Resolved with Sequelae]
  - Paresis [Unknown]
  - Hypoaesthesia [Unknown]

NARRATIVE: CASE EVENT DATE: 20240301
